FAERS Safety Report 6033479-2 (Version None)
Quarter: 2009Q1

REPORT INFORMATION
  Report Type: 
  Country: None (occurrence: None)
  Receive Date: 20090109
  Receipt Date: 20090109
  Transmission Date: 20090719
  Serious: Yes (Death, Hospitalization)
  Sender: FDA-Public Use
  Company Number: JP-B.I. PHARMACEUTICALS,INC./RIDGEFIELD-2006-BP-02560NB

PATIENT
  Sex: Male
  Weight: 43 kg

DRUGS (6)
  1. SPIRIVA [Suspect]
     Indication: EMPHYSEMA
     Dosage: 18MCG
     Route: 055
     Dates: start: 20060116, end: 20060126
  2. SEREVENT [Concomitant]
     Indication: CHRONIC OBSTRUCTIVE PULMONARY DISEASE
     Dosage: 2PUF
     Route: 055
     Dates: start: 20060115
  3. SOLU-CORTEF [Concomitant]
     Indication: CHRONIC OBSTRUCTIVE PULMONARY DISEASE
     Dosage: 100MG
     Route: 042
     Dates: start: 20060115, end: 20060117
  4. ORGADRONE (DEXAMETHASONE SODIUM PHOSPHATE) [Concomitant]
     Indication: LUNG NEOPLASM MALIGNANT
     Dosage: 3.8MG
     Route: 042
     Dates: start: 20060118
  5. BENZALIN [Concomitant]
     Indication: INSOMNIA
     Dosage: 5MG
     Route: 048
     Dates: start: 20060123
  6. SOLANAX [Concomitant]
     Indication: INSOMNIA
     Dosage: .4MG
     Route: 048
     Dates: start: 20060125

REACTIONS (5)
  - CHRONIC OBSTRUCTIVE PULMONARY DISEASE [None]
  - DRY MOUTH [None]
  - LUNG NEOPLASM MALIGNANT [None]
  - MALIGNANT NEOPLASM PROGRESSION [None]
  - PHARYNGITIS [None]
